FAERS Safety Report 4873495-7 (Version None)
Quarter: 2005Q4

REPORT INFORMATION
  Report Type: 
  Country: None (occurrence: None)
  Receive Date: 20051201
  Receipt Date: 20050819
  Transmission Date: 20060501
  Serious: No
  Sender: FDA-Public Use
  Company Number: 2005PV001411

PATIENT
  Age: 65 Year
  Sex: Female
  Weight: 95.709 kg

DRUGS (13)
  1. BYETTA [Suspect]
     Indication: DIABETES MELLITUS NON-INSULIN-DEPENDENT
     Dosage: 5 MCG;BID;SC
     Route: 058
     Dates: start: 20050818
  2. METFORMIN [Concomitant]
  3. GLIPIZIDE [Concomitant]
  4. STARLIX [Concomitant]
  5. METOPROLOL [Concomitant]
  6. FUROSEMIDE [Concomitant]
  7. LIPITOR [Concomitant]
  8. TRAMADOL HCL [Concomitant]
  9. CYCLOBENZAPRINE HCL [Concomitant]
  10. NEXIUM [Concomitant]
  11. EVISTA [Concomitant]
  12. ASPIRIN [Concomitant]
  13. POTASSIUM [Concomitant]

REACTIONS (8)
  - ASTHENIA [None]
  - DECREASED APPETITE [None]
  - FATIGUE [None]
  - FEELING JITTERY [None]
  - FLUSHING [None]
  - HEADACHE [None]
  - INSOMNIA [None]
  - SOMNOLENCE [None]
